FAERS Safety Report 15656124 (Version 1)
Quarter: 2018Q4

REPORT INFORMATION
  Report Type: Report from Study
  Country: US (occurrence: US)
  Receive Date: 20181126
  Receipt Date: 20181126
  Transmission Date: 20190205
  Serious: Yes (Other)
  Sender: FDA-Public Use
  Company Number: US-PFIZER INC-2018481667

PATIENT
  Age: 60 Year
  Sex: Female

DRUGS (1)
  1. XELJANZ XR [Suspect]
     Active Substance: TOFACITINIB CITRATE
     Indication: RHEUMATOID ARTHRITIS
     Dosage: 11 MG, DAILY
     Route: 048
     Dates: start: 201810, end: 2018

REACTIONS (5)
  - Muscular weakness [Unknown]
  - Musculoskeletal pain [Unknown]
  - Swollen tongue [Unknown]
  - Rash [Unknown]
  - Gingival abscess [Unknown]

NARRATIVE: CASE EVENT DATE: 2018
